FAERS Safety Report 15292509 (Version 2)
Quarter: 2018Q3

REPORT INFORMATION
  Report Type: Spontaneous
  Country: DE (occurrence: DE)
  Receive Date: 20180818
  Receipt Date: 20180821
  Transmission Date: 20181010
  Serious: Yes (Hospitalization)
  Sender: FDA-Public Use
  Company Number: DE-LANNETT COMPANY, INC.-DE-2018LAN000947

PATIENT

DRUGS (2)
  1. BACLOFEN (20MG) [Suspect]
     Active Substance: BACLOFEN
     Dosage: 8 X 25 MG
     Route: 065
  2. BACLOFEN (20MG) [Suspect]
     Active Substance: BACLOFEN
     Indication: ALCOHOLISM
     Dosage: UNK
     Route: 065

REACTIONS (6)
  - Off label use [Unknown]
  - Multiple organ dysfunction syndrome [Recovering/Resolving]
  - Amnesia [Unknown]
  - Stress cardiomyopathy [Recovering/Resolving]
  - Delirium [None]
  - Prescribed overdose [Unknown]
